FAERS Safety Report 4618606-3 (Version None)
Quarter: 2005Q1

REPORT INFORMATION
  Report Type: 
  Country: None (occurrence: None)
  Receive Date: 20050323
  Receipt Date: 20050307
  Transmission Date: 20050727
  Serious: Yes (Other)
  Sender: FDA-Public Use
  Company Number: L05-GER-01072-01

PATIENT
  Sex: Female

DRUGS (1)
  1. CARBAMAZEPINE [Suspect]
     Indication: INTENTIONAL MISUSE

REACTIONS (6)
  - COMA [None]
  - DRUG EXPOSURE DURING PREGNANCY [None]
  - DRUG TOXICITY [None]
  - FOETAL DISORDER [None]
  - INTENTIONAL MISUSE [None]
  - SUICIDE ATTEMPT [None]
